FAERS Safety Report 15158517 (Version 1)
Quarter: 2018Q3

REPORT INFORMATION
  Report Type: Spontaneous
  Country: US (occurrence: US)
  Receive Date: 20180718
  Receipt Date: 20180718
  Transmission Date: 20181010
  Serious: Yes (Other)
  Sender: FDA-Public Use
  Company Number: US-ALLERGAN-1833255US

PATIENT
  Age: 0 Day
  Sex: Male

DRUGS (18)
  1. DURAGESIC [Suspect]
     Active Substance: FENTANYL
     Indication: MATERNAL EXPOSURE TIMING UNSPECIFIED
     Route: 064
  2. OPANA [Suspect]
     Active Substance: OXYMORPHONE HYDROCHLORIDE
     Indication: MATERNAL EXPOSURE TIMING UNSPECIFIED
     Route: 064
  3. VICODIN [Suspect]
     Active Substance: ACETAMINOPHEN\HYDROCODONE BITARTRATE
     Indication: MATERNAL EXPOSURE TIMING UNSPECIFIED
     Route: 064
  4. HYDROMORPHONE [Suspect]
     Active Substance: HYDROMORPHONE
     Indication: MATERNAL EXPOSURE TIMING UNSPECIFIED
     Route: 064
  5. SUBOXONE [Suspect]
     Active Substance: BUPRENORPHINE HYDROCHLORIDE\NALOXONE HYDROCHLORIDE
     Indication: MATERNAL EXPOSURE TIMING UNSPECIFIED
     Route: 064
  6. OXYMORPHONE [Suspect]
     Active Substance: OXYMORPHONE
     Indication: MATERNAL EXPOSURE TIMING UNSPECIFIED
     Route: 064
  7. OXYCODONE [Suspect]
     Active Substance: OXYCODONE
     Indication: MATERNAL EXPOSURE TIMING UNSPECIFIED
     Route: 064
  8. ACTIQ [Suspect]
     Active Substance: FENTANYL CITRATE
     Indication: MATERNAL EXPOSURE TIMING UNSPECIFIED
     Route: 064
  9. FENTORA [Suspect]
     Active Substance: FENTANYL CITRATE
     Indication: MATERNAL EXPOSURE TIMING UNSPECIFIED
     Route: 064
  10. OPANA ER [Suspect]
     Active Substance: OXYMORPHONE HYDROCHLORIDE
     Indication: MATERNAL EXPOSURE TIMING UNSPECIFIED
     Route: 064
  11. PERCODAN [Suspect]
     Active Substance: ASPIRIN\OXYCODONE HYDROCHLORIDE
     Indication: MATERNAL EXPOSURE TIMING UNSPECIFIED
     Route: 064
  12. MS CONTIN [Suspect]
     Active Substance: MORPHINE SULFATE
     Indication: MATERNAL EXPOSURE TIMING UNSPECIFIED
     Route: 064
  13. PERCOCET [Suspect]
     Active Substance: ACETAMINOPHEN\OXYCODONE HYDROCHLORIDE
     Indication: MATERNAL EXPOSURE TIMING UNSPECIFIED
     Route: 064
  14. KADIAN [Suspect]
     Active Substance: MORPHINE SULFATE
     Indication: MATERNAL EXPOSURE TIMING UNSPECIFIED
     Route: 064
  15. OXYCONTIN [Suspect]
     Active Substance: OXYCODONE HYDROCHLORIDE
     Indication: MATERNAL EXPOSURE TIMING UNSPECIFIED
     Route: 064
  16. LORTAB [Suspect]
     Active Substance: ACETAMINOPHEN\HYDROCODONE BITARTRATE
     Indication: MATERNAL EXPOSURE TIMING UNSPECIFIED
     Route: 064
  17. NORCO [Suspect]
     Active Substance: ACETAMINOPHEN\HYDROCODONE BITARTRATE
     Indication: MATERNAL EXPOSURE TIMING UNSPECIFIED
     Route: 064
  18. DILAUDID [Suspect]
     Active Substance: HYDROMORPHONE HYDROCHLORIDE
     Indication: MATERNAL EXPOSURE TIMING UNSPECIFIED
     Route: 064

REACTIONS (1)
  - Drug withdrawal syndrome neonatal [Unknown]

NARRATIVE: CASE EVENT DATE: 20170904
